FAERS Safety Report 12606251 (Version 1)
Quarter: 2016Q3

REPORT INFORMATION
  Report Type: Spontaneous
  Country: GB (occurrence: GB)
  Receive Date: 20160729
  Receipt Date: 20160729
  Transmission Date: 20161109
  Serious: Yes (Hospitalization)
  Sender: FDA-Public Use
  Company Number: GB-ACTAVISPR-2016-16186

PATIENT
  Age: 36 Year
  Sex: Female

DRUGS (1)
  1. CITALOPRAM [Suspect]
     Active Substance: CITALOPRAM HYDROBROMIDE
     Indication: DEPRESSION
     Dosage: 1 DF, DAILY (1 TABLET IN THE EVENINING OF 13-JUL-2016 AND 1 TABLET IN THE MORNING OF 14-JUL-2016)
     Route: 048
     Dates: start: 20160713, end: 20160714

REACTIONS (1)
  - Seizure [Recovered/Resolved]

NARRATIVE: CASE EVENT DATE: 20160714
